FAERS Safety Report 22588933 (Version 2)
Quarter: 2023Q2

REPORT INFORMATION
  Report Type: Spontaneous
  Country: US (occurrence: US)
  Receive Date: 20230612
  Receipt Date: 20230621
  Transmission Date: 20230722
  Serious: No
  Sender: FDA-Public Use
  Company Number: US-LUPIN PHARMACEUTICALS INC.-2023-04456

PATIENT

DRUGS (1)
  1. LISINOPRIL [Suspect]
     Active Substance: LISINOPRIL
     Indication: Blood pressure abnormal
     Dosage: 20 MG
     Route: 065

REACTIONS (2)
  - Headache [Not Recovered/Not Resolved]
  - Drug ineffective [Unknown]
